FAERS Safety Report 6710120-4 (Version None)
Quarter: 2010Q2

REPORT INFORMATION
  Report Type: 
  Country: None (occurrence: None)
  Receive Date: 20100504
  Receipt Date: 20100427
  Transmission Date: 20101027
  Serious: Yes (Death, Hospitalization, Disabling)
  Sender: FDA-Public Use
  Company Number: JP-BRISTOL-MYERS SQUIBB COMPANY-14413702

PATIENT
  Age: 71 Year
  Sex: Male
  Weight: 57 kg

DRUGS (23)
  1. ERBITUX [Suspect]
     Indication: RECTAL CANCER
     Dosage: 1DF=670 MG/BODY
     Route: 042
     Dates: start: 20081105, end: 20081105
  2. ERBITUX [Suspect]
     Indication: COLON CANCER
     Dosage: 1DF=670 MG/BODY
     Route: 042
     Dates: start: 20081105, end: 20081105
  3. TOPOTECAN [Suspect]
     Indication: RECTAL CANCER
     Dosage: 1 DF=250MG/BODY
     Route: 042
     Dates: start: 20081105, end: 20081105
  4. TOPOTECAN [Suspect]
     Indication: COLON CANCER
     Dosage: 1 DF=250MG/BODY
     Route: 042
     Dates: start: 20081105, end: 20081105
  5. RESTAMIN [Concomitant]
     Indication: PREMEDICATION
     Dosage: TAB 5 DF-5 TABS
     Route: 048
     Dates: start: 20081105, end: 20081105
  6. DEXART [Concomitant]
     Indication: PREMEDICATION
     Route: 042
     Dates: start: 20081105, end: 20081105
  7. GRANISETRON HCL [Concomitant]
     Route: 042
     Dates: start: 20081105, end: 20081105
  8. NEUPOGEN [Concomitant]
     Dates: start: 20081112, end: 20081118
  9. MAGMITT [Concomitant]
     Indication: PREMEDICATION
     Dosage: 3DF-3T
     Route: 048
     Dates: start: 20081105, end: 20081105
  10. PRIMPERAN TAB [Concomitant]
     Indication: PREMEDICATION
     Dosage: 3DF-3T
     Route: 048
     Dates: start: 20081105, end: 20081105
  11. URSO 250 [Concomitant]
     Indication: PREMEDICATION
     Dosage: 3DF-3T
     Route: 048
     Dates: start: 20081105, end: 20081105
  12. SODIUM BICARBONATE [Concomitant]
     Indication: PREMEDICATION
     Route: 048
     Dates: start: 20081105, end: 20081105
  13. DIGOXIN [Concomitant]
     Indication: CARDIAC FAILURE CHRONIC
     Dosage: 1DF-0.5 T(0.5DF)
     Route: 048
     Dates: start: 20081105, end: 20081105
  14. ZANTAC [Concomitant]
     Indication: GASTRITIS
     Dosage: 1DF-1T
     Route: 048
     Dates: start: 20081105, end: 20081105
  15. LASIX [Concomitant]
     Indication: CARDIAC FAILURE CHRONIC
     Dosage: 1DF-0.5 T (0.5DF)
     Route: 048
     Dates: start: 20081105, end: 20081105
  16. ALLOPURINOL [Concomitant]
     Indication: GOUT
     Dosage: 1DF-1T
     Route: 048
     Dates: start: 20081105, end: 20081105
  17. NIVADIL [Concomitant]
     Indication: HYPERTENSION
     Dosage: 2DF-2T
     Route: 048
     Dates: start: 20081105, end: 20081105
  18. RENIVACE [Concomitant]
     Indication: HYPOKALAEMIA
     Dosage: 1DF-1T
     Route: 048
     Dates: start: 20081105, end: 20081105
  19. ASPARA [Concomitant]
     Indication: HYPOKALAEMIA
     Route: 048
     Dates: start: 20081105, end: 20081105
  20. EBRANTIL [Concomitant]
     Indication: NEUROGENIC BLADDER
     Dosage: 1DF-1CAP
     Route: 048
     Dates: start: 20081105, end: 20081105
  21. UBRETID [Concomitant]
     Indication: NEUROGENIC BLADDER
     Dosage: 1DF-1T
     Route: 048
     Dates: start: 20081105, end: 20081105
  22. GLIMICRON [Concomitant]
     Indication: HEPATIC FUNCTION ABNORMAL
     Dosage: 1DF-0.5T (0.5DF)
     Route: 048
     Dates: start: 20081105, end: 20081105
  23. BIOFERMIN [Concomitant]
     Indication: DIARRHOEA
     Route: 048
     Dates: start: 20081105, end: 20081105

REACTIONS (4)
  - BONE MARROW FAILURE [None]
  - CARDIAC FAILURE [None]
  - DIARRHOEA [None]
  - INTESTINAL OBSTRUCTION [None]
